FAERS Safety Report 6783380-1 (Version None)
Quarter: 2010Q2

REPORT INFORMATION
  Report Type: 
  Country: None (occurrence: None)
  Receive Date: 20100622
  Receipt Date: 20100609
  Transmission Date: 20101027
  Serious: Yes (Other)
  Sender: FDA-Public Use
  Company Number: PHHY2010TW35264

PATIENT
  Age: 77 Year
  Sex: Female

DRUGS (1)
  1. ACLASTA [Suspect]
     Indication: OSTEOPOROSIS POSTMENOPAUSAL
     Dosage: 5 MG/100 CC, ONCE PER YEAR
     Route: 042
     Dates: start: 20100225

REACTIONS (3)
  - PURULENCE [None]
  - TOOTH EXTRACTION [None]
  - TOOTHACHE [None]
